FAERS Safety Report 15634027 (Version 15)
Quarter: 2019Q3

REPORT INFORMATION
  Report Type: Report from Study
  Country: CA (occurrence: CA)
  Receive Date: 20181119
  Receipt Date: 20190806
  Transmission Date: 20191004
  Serious: Yes (Hospitalization, Other)
  Sender: FDA-Public Use
  Company Number: PHHY2018CA156069

PATIENT
  Age: 77 Year
  Sex: Female

DRUGS (7)
  1. COSENTYX [Suspect]
     Active Substance: SECUKINUMAB
     Dosage: 300 MG, QMO
     Route: 058
     Dates: start: 20190214
  2. COSENTYX [Suspect]
     Active Substance: SECUKINUMAB
     Indication: PSORIASIS
     Dosage: 300 MG, QW (0, 1, 2, AND 3)
     Route: 058
     Dates: start: 20181111
  3. COSENTYX [Suspect]
     Active Substance: SECUKINUMAB
     Dosage: 300 MG, QMO
     Route: 058
     Dates: start: 20190314
  4. DOVOBET [Concomitant]
     Active Substance: BETAMETHASONE\CALCIPOTRIENE
     Indication: PRODUCT USED FOR UNKNOWN INDICATION
     Dosage: UNK UNK, PRN
     Route: 065
  5. COSENTYX [Suspect]
     Active Substance: SECUKINUMAB
     Dosage: 300 MG, QMO
     Route: 058
     Dates: start: 20181206
  6. COSENTYX [Suspect]
     Active Substance: SECUKINUMAB
     Dosage: 300 MG, QMO
     Route: 058
     Dates: start: 20190112
  7. OTEZLA [Concomitant]
     Active Substance: APREMILAST
     Indication: PRODUCT USED FOR UNKNOWN INDICATION
     Route: 065

REACTIONS (13)
  - Cough [Not Recovered/Not Resolved]
  - Seizure [Unknown]
  - Lung carcinoma cell type unspecified stage IV [Unknown]
  - Muscle atrophy [Unknown]
  - Meningioma [Unknown]
  - Visual impairment [Unknown]
  - Pneumonia [Unknown]
  - Psoriasis [Unknown]
  - Respiratory tract congestion [Recovering/Resolving]
  - Lower respiratory tract infection [Unknown]
  - Blood pressure increased [Unknown]
  - Ocular procedural complication [Unknown]
  - Eye pain [Unknown]

NARRATIVE: CASE EVENT DATE: 20181206
